FAERS Safety Report 14276316 (Version 1)
Quarter: 2017Q4

REPORT INFORMATION
  Report Type: Report from Study
  Country: US (occurrence: US)
  Receive Date: 20171212
  Receipt Date: 20171212
  Transmission Date: 20180321
  Serious: Yes (Hospitalization)
  Sender: FDA-Public Use
  Company Number: US-PFIZER INC-2017525470

PATIENT
  Age: 63 Year
  Sex: Female
  Weight: 66.7 kg

DRUGS (7)
  1. HUMIRA [Suspect]
     Active Substance: ADALIMUMAB
     Dosage: DAY 15 (80 MG)
     Route: 058
     Dates: start: 20170808, end: 20170808
  2. AMLODIPINE [Concomitant]
     Active Substance: AMLODIPINE BESYLATE
     Dosage: UNK
  3. HUMIRA [Suspect]
     Active Substance: ADALIMUMAB
     Dosage: 40 MG, 1 IN 2 WK
     Route: 058
     Dates: start: 201709
  4. DULOXETINE. [Concomitant]
     Active Substance: DULOXETINE
     Dosage: UNK
  5. CELEBREX [Suspect]
     Active Substance: CELECOXIB
     Indication: PAIN
     Dosage: UNK
     Route: 065
     Dates: end: 2017
  6. HUMIRA [Suspect]
     Active Substance: ADALIMUMAB
     Dosage: 40 MILLIEQUIVALENTS, 1 IN 2 WK
     Route: 058
     Dates: start: 201708, end: 201708
  7. HUMIRA [Suspect]
     Active Substance: ADALIMUMAB
     Indication: CROHN^S DISEASE
     Dosage: DAY 1 (160 MG)
     Route: 058
     Dates: start: 20170725, end: 20170725

REACTIONS (11)
  - Haematemesis [Recovered/Resolved]
  - Bacterial pyelonephritis [Recovered/Resolved]
  - Diarrhoea [Unknown]
  - Condition aggravated [Recovered/Resolved]
  - Crohn^s disease [Recovered/Resolved]
  - Abdominal pain [Recovering/Resolving]
  - Upper gastrointestinal haemorrhage [Recovered/Resolved]
  - Pyelonephritis acute [Recovered/Resolved]
  - Enteritis infectious [Unknown]
  - Pyrexia [Unknown]
  - Diverticulum [Recovering/Resolving]

NARRATIVE: CASE EVENT DATE: 201708
